FAERS Safety Report 24629620 (Version 1)
Quarter: 2024Q4

REPORT INFORMATION
  Report Type: Spontaneous
  Country: JP (occurrence: JP)
  Receive Date: 20241118
  Receipt Date: 20241118
  Transmission Date: 20250115
  Serious: Yes (Other)
  Sender: ALEXION PHARMACEUTICALS
  Company Number: JP-ASTRAZENECA-240121218_010520_P_1

PATIENT
  Age: 60 Year

DRUGS (12)
  1. FULVESTRANT [Suspect]
     Active Substance: FULVESTRANT
     Indication: Breast cancer
     Dosage: 500 MILLIGRAM, Q4W
  2. FULVESTRANT [Suspect]
     Active Substance: FULVESTRANT
     Dosage: 500 MILLIGRAM, Q4W
  3. FULVESTRANT [Suspect]
     Active Substance: FULVESTRANT
     Dosage: 500 MILLIGRAM, Q4W
  4. FULVESTRANT [Suspect]
     Active Substance: FULVESTRANT
     Dosage: 500 MILLIGRAM, Q4W
  5. DENOSUMAB [Concomitant]
     Active Substance: DENOSUMAB
     Indication: Breast cancer
     Dosage: NUMBER OF SEPARATE DOSAGES UNKNOWN
  6. DENOSUMAB [Concomitant]
     Active Substance: DENOSUMAB
     Dosage: NUMBER OF SEPARATE DOSAGES UNKNOWN
     Route: 065
  7. ABEMACICLIB [Concomitant]
     Active Substance: ABEMACICLIB
     Indication: Breast cancer
     Dosage: NUMBER OF SEPARATE DOSAGES UNKNOWN
     Route: 065
  8. ABEMACICLIB [Concomitant]
     Active Substance: ABEMACICLIB
     Dosage: NUMBER OF SEPARATE DOSAGES UNKNOWN
  9. ABEMACICLIB [Concomitant]
     Active Substance: ABEMACICLIB
     Dosage: NUMBER OF SEPARATE DOSAGES UNKNOWN
     Route: 065
  10. ABEMACICLIB [Concomitant]
     Active Substance: ABEMACICLIB
     Dosage: NUMBER OF SEPARATE DOSAGES UNKNOWN
  11. ABEMACICLIB [Concomitant]
     Active Substance: ABEMACICLIB
     Dosage: NUMBER OF SEPARATE DOSAGES UNKNOWN
     Route: 065
  12. ABEMACICLIB [Concomitant]
     Active Substance: ABEMACICLIB
     Dosage: NUMBER OF SEPARATE DOSAGES UNKNOWN

REACTIONS (2)
  - Neutrophil count decreased [Unknown]
  - Tumour marker increased [Unknown]
